FAERS Safety Report 4853261-9 (Version None)
Quarter: 2005Q4

REPORT INFORMATION
  Report Type: 
  Country: None (occurrence: None)
  Receive Date: 20051212
  Receipt Date: 20051130
  Transmission Date: 20060501
  Serious: Yes (Hospitalization)
  Sender: FDA-Public Use
  Company Number: 2005158916

PATIENT
  Age: 86 Year
  Sex: 0

DRUGS (8)
  1. AROMASIN [Suspect]
     Indication: BREAST CANCER
     Dosage: 25 MG (25 MG, DAILY), OTHER
     Route: 050
     Dates: start: 20021227
  2. GLICLAZIDE (GLICLAZIDE) [Concomitant]
  3. ALDALIX (FUROSEMIDE, SPIRONOLACTONE) [Concomitant]
  4. BISOPROLOL FUMARATE [Concomitant]
  5. LEVOTHYROXINE SODIUM [Concomitant]
  6. PARACETAMOL (PARACETAMOL) [Concomitant]
  7. OXAZEPAM [Concomitant]
  8. DIOSMINE (DIOSMIN) [Concomitant]

REACTIONS (2)
  - ENDOMETRIAL CANCER [None]
  - LEIOMYOMA [None]
